FAERS Safety Report 12498479 (Version 1)
Quarter: 2016Q2

REPORT INFORMATION
  Report Type: Spontaneous
  Country: JP (occurrence: JP)
  Receive Date: 20160627
  Receipt Date: 20160627
  Transmission Date: 20160815
  Serious: Yes (Other)
  Sender: FDA-Public Use
  Company Number: JP-CIPLA LTD.-2016JP07422

PATIENT

DRUGS (2)
  1. TS-1 [Suspect]
     Active Substance: GIMERACIL\OTERACIL\TEGAFUR
     Indication: SQUAMOUS CELL CARCINOMA OF LUNG
     Dosage: 40 MG/M2, BID, ON DAYS 1-14 OF A 28-DAY CYCLE,
     Route: 048
  2. CARBOPLATIN. [Suspect]
     Active Substance: CARBOPLATIN
     Indication: SQUAMOUS CELL CARCINOMA OF LUNG
     Dosage: AREA UNDER CURVE (AUC) OF 5 ON DAY 1 OF 28 DAY CYCLE
     Route: 042

REACTIONS (1)
  - Hypercalcaemia [Unknown]
